FAERS Safety Report 8885146 (Version 1)
Quarter: 2012Q4

REPORT INFORMATION
  Report Type: 
  Country: US (occurrence: US)
  Receive Date: 20121102
  Receipt Date: 20121102
  Transmission Date: 20130627
  Serious: No
  Sender: FDA-Public Use
  Company Number: US-PFIZER INC-2012272922

PATIENT
  Age: 73 Year
  Sex: Female

DRUGS (7)
  1. INLYTA [Suspect]
     Indication: KIDNEY CANCER
     Dosage: 5 mg, UNK
  2. PROCHLORPERAZINE MALEATE [Concomitant]
     Dosage: UNK
  3. ZOFRAN [Concomitant]
     Dosage: UNK
  4. MELATONIN [Concomitant]
     Dosage: UNK
  5. MORPHINE SULFATE [Concomitant]
     Dosage: UNK
  6. ATIVAN [Concomitant]
     Dosage: UNK
  7. SYNTHROID [Concomitant]
     Dosage: UNK

REACTIONS (2)
  - Nausea [Unknown]
  - Pain in extremity [Unknown]
